FAERS Safety Report 8521400-4 (Version None)
Quarter: 2012Q3

REPORT INFORMATION
  Report Type: 
  Country: None (occurrence: None)
  Receive Date: 20120719
  Receipt Date: 20120712
  Transmission Date: 20120928
  Serious: Yes (Hospitalization)
  Sender: FDA-Public Use
  Company Number: US-ACTELION-A-NJ2012-68324

PATIENT

DRUGS (2)
  1. COUMADIN [Concomitant]
  2. TRACLEER [Suspect]
     Indication: PULMONARY ARTERIAL HYPERTENSION
     Dosage: UNK
     Route: 048
     Dates: start: 20110129

REACTIONS (6)
  - TRACHEOSTOMY [None]
  - CARDIAC ABLATION [None]
  - CARDIAC PACEMAKER INSERTION [None]
  - RESPIRATORY FAILURE [None]
  - ENDOTRACHEAL INTUBATION [None]
  - ATRIAL FIBRILLATION [None]
